FAERS Safety Report 21684921 (Version 3)
Quarter: 2023Q1

REPORT INFORMATION
  Report Type: Spontaneous
  Country: US (occurrence: US)
  Receive Date: 20221205
  Receipt Date: 20230210
  Transmission Date: 20230418
  Serious: No
  Sender: FDA-Public Use
  Company Number: US-GLAXOSMITHKLINE-US2022178556

PATIENT
  Sex: Female
  Weight: 85.261 kg

DRUGS (5)
  1. ZEJULA [Suspect]
     Active Substance: NIRAPARIB
     Indication: Ovarian cancer
     Dosage: 300 MG, QD
     Dates: start: 20221115, end: 20221127
  2. ZEJULA [Suspect]
     Active Substance: NIRAPARIB
     Dosage: 200 MG, QD
     Route: 048
  3. VITAMIN C [Concomitant]
     Active Substance: ASCORBIC ACID
     Indication: Product used for unknown indication
     Dosage: 1000 MG
  4. ZYRTEC CAPSULE [Concomitant]
     Indication: Product used for unknown indication
     Dosage: 10 MG
  5. TYLENOL [Concomitant]
     Active Substance: ACETAMINOPHEN
     Indication: Product used for unknown indication
     Dosage: 325 MG

REACTIONS (8)
  - Platelet count decreased [Recovered/Resolved]
  - Hypertension [Unknown]
  - Nausea [Recovering/Resolving]
  - Fatigue [Recovering/Resolving]
  - Dysphagia [Unknown]
  - Haemoglobin decreased [Recovered/Resolved]
  - Insomnia [Recovering/Resolving]
  - Therapeutic response unexpected [Unknown]
